FAERS Safety Report 8245348-8 (Version None)
Quarter: 2012Q1

REPORT INFORMATION
  Report Type: 
  Country: None (occurrence: None)
  Receive Date: 20120329
  Receipt Date: 20120321
  Transmission Date: 20120608
  Serious: Yes (Other)
  Sender: FDA-Public Use
  Company Number: US-ALLERGAN-1203596US

PATIENT
  Age: 39 Year
  Sex: Female

DRUGS (4)
  1. LATISSE [Suspect]
     Indication: GROWTH OF EYELASHES
     Dosage: 2 GTT, QHS FOR ONE AND ONE HALF YEARS
     Route: 061
     Dates: start: 20100101, end: 20111001
  2. VISINE                             /00256502/ [Concomitant]
     Indication: DRY EYE
     Dosage: 2 GTT, PRN
     Route: 047
     Dates: start: 20110401
  3. VISINE                             /00256502/ [Concomitant]
     Indication: ERYTHEMA
  4. LATISSE [Suspect]

REACTIONS (9)
  - EYE PRURITUS [None]
  - PRURITUS [None]
  - ERYTHEMA [None]
  - MATERNAL EXPOSURE DURING PREGNANCY [None]
  - WRONG TECHNIQUE IN DRUG USAGE PROCESS [None]
  - STILLBIRTH [None]
  - OCULAR HYPERAEMIA [None]
  - TRICHORRHEXIS [None]
  - EYE PAIN [None]
